FAERS Safety Report 7015531-8 (Version None)
Quarter: 2010Q3

REPORT INFORMATION
  Report Type: 
  Country: None (occurrence: None)
  Receive Date: 20100922
  Receipt Date: 20100915
  Transmission Date: 20110219
  Serious: Yes (Other)
  Sender: FDA-Public Use
  Company Number: 2010SP033310

PATIENT
  Age: 70 Year
  Sex: Female

DRUGS (19)
  1. CLARITIN [Suspect]
     Indication: RHINITIS ALLERGIC
     Dosage: 10 MG;PO
     Route: 048
     Dates: start: 20090312, end: 20090423
  2. PIRESPA (OTHER RESPIRATORY SYSTEM PRODUCTS) [Suspect]
     Dosage: 200 MG;TID;PO ; 400 MG;TID;PO ; 600 MG;TID;PO ; 400 MG;TID;PO
     Route: 048
     Dates: start: 20090202, end: 20090215
  3. PIRESPA (OTHER RESPIRATORY SYSTEM PRODUCTS) [Suspect]
     Dosage: 200 MG;TID;PO ; 400 MG;TID;PO ; 600 MG;TID;PO ; 400 MG;TID;PO
     Route: 048
     Dates: start: 20090216, end: 20090301
  4. PIRESPA (OTHER RESPIRATORY SYSTEM PRODUCTS) [Suspect]
     Dosage: 200 MG;TID;PO ; 400 MG;TID;PO ; 600 MG;TID;PO ; 400 MG;TID;PO
     Route: 048
     Dates: start: 20090302, end: 20090617
  5. PIRESPA (OTHER RESPIRATORY SYSTEM PRODUCTS) [Suspect]
     Dosage: 200 MG;TID;PO ; 400 MG;TID;PO ; 600 MG;TID;PO ; 400 MG;TID;PO
     Route: 048
     Dates: start: 20090618, end: 20100224
  6. CODEINE PHOSPHATE [Concomitant]
  7. HUSTAGIN (PLANTAGO HERB EXTRACT) [Concomitant]
  8. MAGNESIUM OXIDE [Concomitant]
  9. MUCODYNE [Concomitant]
  10. QVAR 40 [Concomitant]
  11. ACTOS [Concomitant]
  12. SINLESTAL [Concomitant]
  13. TOUCHRON [Concomitant]
  14. NOVORAPID [Concomitant]
  15. TAKEPRON CD [Concomitant]
  16. LASIX [Concomitant]
  17. MUCOSOLVAN /00546002/ [Concomitant]
  18. GLYCERIN [Concomitant]
  19. SOL MELCORT [Concomitant]

REACTIONS (2)
  - PNEUMONIA [None]
  - RHINITIS ALLERGIC [None]
